FAERS Safety Report 9344370 (Version 2)
Quarter: 2013Q3

REPORT INFORMATION
  Report Type: Spontaneous
  Country: US (occurrence: US)
  Receive Date: 20130612
  Receipt Date: 20130708
  Transmission Date: 20140515
  Serious: Yes (Hospitalization, Other)
  Sender: FDA-Public Use
  Company Number: US-FRI-1000045723

PATIENT
  Age: 51 Year
  Sex: Female
  Weight: 63.96 kg

DRUGS (5)
  1. VIIBRYD [Suspect]
     Indication: MAJOR DEPRESSION
     Dosage: 10 MG
     Route: 048
     Dates: start: 20130313, end: 20130619
  2. VIIBRYD [Suspect]
     Indication: MAJOR DEPRESSION
     Dosage: 20 MG
     Route: 048
     Dates: start: 20130320, end: 20130326
  3. TRAZODONE [Concomitant]
     Dosage: 50 MG
     Route: 048
  4. LISINOPRIL [Concomitant]
     Dosage: 10 MG
     Route: 048
  5. LORAZEPAM [Concomitant]
     Dosage: 0.5 MG PRN

REACTIONS (1)
  - Suicide attempt [Recovered/Resolved]
